FAERS Safety Report 7177298-2 (Version None)
Quarter: 2010Q4

REPORT INFORMATION
  Report Type: 
  Country: None (occurrence: None)
  Receive Date: 20101216
  Receipt Date: 20101216
  Transmission Date: 20110411
  Serious: Yes (Hospitalization)
  Sender: FDA-Public Use
  Company Number: None

PATIENT
  Age: 53 Year
  Sex: Male

DRUGS (1)
  1. ZOCOR [Suspect]
     Indication: HYPERCHOLESTEROLAEMIA
     Dosage: 20 MG DAILY PO
     Route: 048
     Dates: start: 20100901, end: 20101215

REACTIONS (6)
  - ARRHYTHMIA [None]
  - ASTHENIA [None]
  - CARDIAC DISORDER [None]
  - NAUSEA [None]
  - NIGHT SWEATS [None]
  - SYNCOPE [None]
